FAERS Safety Report 15739401 (Version 1)
Quarter: 2018Q4

REPORT INFORMATION
  Report Type: Spontaneous
  Country: US (occurrence: US)
  Receive Date: 20181218
  Receipt Date: 20181218
  Transmission Date: 20190205
  Serious: No
  Sender: FDA-Public Use
  Company Number: None

PATIENT
  Age: 25 Year
  Sex: Female

DRUGS (4)
  1. GLUCOSOMINE [Concomitant]
  2. IRON [Concomitant]
     Active Substance: IRON
  3. MULIT VIT [Concomitant]
  4. NEXPLANON [Suspect]
     Active Substance: ETONOGESTREL
     Indication: INTRA-UTERINE CONTRACEPTIVE DEVICE
     Dosage: ?          OTHER FREQUENCY:ONE TIME;?
     Route: 015

REACTIONS (1)
  - Vaginal haemorrhage [None]

NARRATIVE: CASE EVENT DATE: 20181118
